FAERS Safety Report 7338515-9 (Version None)
Quarter: 2011Q1

REPORT INFORMATION
  Report Type: 
  Country: None (occurrence: None)
  Receive Date: 20110308
  Receipt Date: 20110222
  Transmission Date: 20110831
  Serious: Yes (Other)
  Sender: FDA-Public Use
  Company Number: US-BAYER-201039451NA

PATIENT
  Sex: Female

DRUGS (6)
  1. YASMIN [Suspect]
     Indication: PRODUCT USED FOR UNKNOWN INDICATION
     Route: 048
     Dates: start: 20040901, end: 20091201
  2. TRI-LUMA [Concomitant]
     Dosage: 30 MG, UNK
     Route: 061
     Dates: start: 20050308
  3. PRENATE GT [Concomitant]
     Dosage: UNK UNK, QD
     Route: 048
  4. NATALCARE [Concomitant]
     Dosage: UNK UNK, QD
     Route: 048
     Dates: start: 20050815
  5. METHERGINE [Concomitant]
     Dosage: 0.2 MG, UNK
     Route: 048
     Dates: start: 20040209
  6. OCELLA [Suspect]
     Indication: PRODUCT USED FOR UNKNOWN INDICATION
     Route: 048
     Dates: start: 20040901, end: 20091201

REACTIONS (1)
  - GALLBLADDER DISORDER [None]
